FAERS Safety Report 7495434-5 (Version None)
Quarter: 2011Q2

REPORT INFORMATION
  Report Type: 
  Country: None (occurrence: None)
  Receive Date: 20110523
  Receipt Date: 20110503
  Transmission Date: 20111010
  Serious: No
  Sender: FDA-Public Use
  Company Number: US-TYCO HEALTHCARE/MALLINCKRODT-T201100905

PATIENT
  Age: 50 Year
  Sex: Male

DRUGS (5)
  1. FENTANYL-100 [Suspect]
     Indication: BACK PAIN
     Dosage: 25 UG/HR Q 48 HRS
     Route: 062
     Dates: start: 20110401
  2. FENTANYL [Concomitant]
     Indication: BACK PAIN
     Dosage: UNK
     Dates: start: 20110101, end: 20110101
  3. TIZINIDINE [Concomitant]
  4. FLEXERIL [Concomitant]
  5. NUCYNTA [Concomitant]

REACTIONS (2)
  - DRUG INEFFECTIVE [None]
  - WITHDRAWAL SYNDROME [None]
